FAERS Safety Report 4607849-0 (Version None)
Quarter: 2005Q1

REPORT INFORMATION
  Report Type: 
  Country: None (occurrence: None)
  Receive Date: 20050310
  Receipt Date: 20041230
  Transmission Date: 20050727
  Serious: No
  Sender: FDA-Public Use
  Company Number: 13512

PATIENT
  Age: 7 Year
  Sex: Male

DRUGS (5)
  1. CLOFARABINE [Suspect]
     Indication: ACUTE LYMPHOCYTIC LEUKAEMIA
     Dosage: 56.2 MG QD X 5 IV
     Route: 042
     Dates: start: 20041227, end: 20041227
  2. RANITIDINE [Concomitant]
  3. ONDANSETRON [Concomitant]
  4. PENICILLIN V [Concomitant]
  5. VALACYCLOVIR HCL [Concomitant]

REACTIONS (3)
  - HYPERSENSITIVITY [None]
  - TACHYCARDIA [None]
  - TACHYPNOEA [None]
